FAERS Safety Report 10255846 (Version 2)
Quarter: 2014Q3

REPORT INFORMATION
  Report Type: Spontaneous
  Country: JP (occurrence: JP)
  Receive Date: 20140624
  Receipt Date: 20140707
  Transmission Date: 20150326
  Serious: Yes (Other)
  Sender: FDA-Public Use
  Company Number: JP-WATSON-2014-13180

PATIENT
  Age: 39 Year
  Sex: Female

DRUGS (6)
  1. TACROLIMUS (UNKNOWN) [Suspect]
     Active Substance: TACROLIMUS
     Indication: PROPHYLAXIS AGAINST GRAFT VERSUS HOST DISEASE
     Dosage: 1.2 MG, DAILY
     Route: 048
  2. CYTARABINE. [Concomitant]
     Active Substance: CYTARABINE
     Indication: PROPHYLAXIS AGAINST GRAFT VERSUS HOST DISEASE
     Dosage: 8 G/M2
     Route: 065
  3. CYCLOPHOSPHAMIDE. [Concomitant]
     Active Substance: CYCLOPHOSPHAMIDE
     Indication: PROPHYLAXIS AGAINST GRAFT VERSUS HOST DISEASE
     Dosage: 120 MG/KG, UNKNOWN
     Route: 065
  4. METHOTREXATE [Concomitant]
     Active Substance: METHOTREXATE
     Indication: PROPHYLAXIS AGAINST GRAFT VERSUS HOST DISEASE
     Dosage: UNKNOWN
     Route: 065
  5. PREDNISOLONE (UNKNOWN) [Suspect]
     Active Substance: PREDNISOLONE
     Indication: ACUTE GRAFT VERSUS HOST DISEASE IN SKIN
     Dosage: UNKNOWN
     Route: 065
  6. CYCLOSPORINE (UNKNOWN) [Suspect]
     Active Substance: CYCLOSPORINE
     Indication: PROPHYLAXIS AGAINST GRAFT VERSUS HOST DISEASE
     Dosage: UNKNOWN
     Route: 065

REACTIONS (2)
  - Weight decreased [Unknown]
  - Renal salt-wasting syndrome [Recovered/Resolved]
